FAERS Safety Report 15443453 (Version 1)
Quarter: 2018Q3

REPORT INFORMATION
  Report Type: Spontaneous
  Country: US (occurrence: US)
  Receive Date: 20180928
  Receipt Date: 20180928
  Transmission Date: 20181010
  Serious: No
  Sender: FDA-Public Use
  Company Number: US-009507513-1809USA012708

PATIENT
  Sex: Female
  Weight: 99.77 kg

DRUGS (1)
  1. IMPLANON [Suspect]
     Active Substance: ETONOGESTREL
     Indication: CONTRACEPTION
     Dosage: UNK
     Route: 059
     Dates: start: 20120719, end: 20160921

REACTIONS (3)
  - Incorrect drug administration duration [Unknown]
  - Breast feeding [Unknown]
  - Adverse event [Unknown]

NARRATIVE: CASE EVENT DATE: 201207
